FAERS Safety Report 5652974-9 (Version None)
Quarter: 2008Q1

REPORT INFORMATION
  Report Type: 
  Country: None (occurrence: None)
  Receive Date: 20080131
  Receipt Date: 20071023
  Transmission Date: 20080703
  Serious: No
  Sender: FDA-Public Use
  Company Number: US200710002345

PATIENT
  Age: 49 Year
  Sex: Male
  Weight: 98.9 kg

DRUGS (7)
  1. BYETTA [Suspect]
     Indication: TYPE 2 DIABETES MELLITUS
     Dosage: 5 UG, 2/D, SUBCUTANEOUS
     Route: 058
     Dates: start: 20071001, end: 20071009
  2. EXENATIDE PEN, DISPOSABLE DEVICE (EXENATIDE PEN) PEN,DISPOSABLE [Concomitant]
  3. GLUCOPHAGE [Concomitant]
  4. ACTOS [Concomitant]
  5. CRESTOR [Concomitant]
  6. ALBUTOL (SALBUTAMOL) [Concomitant]
  7. LANTUS [Concomitant]

REACTIONS (2)
  - HYPERSENSITIVITY [None]
  - NAUSEA [None]
